FAERS Safety Report 10258632 (Version 5)
Quarter: 2015Q2

REPORT INFORMATION
  Report Type: Report from Study
  Country: US (occurrence: US)
  Receive Date: 20140625
  Receipt Date: 20150429
  Transmission Date: 20150821
  Serious: Yes (Death, Hospitalization)
  Sender: FDA-Public Use
  Company Number: US-SA-2014SA080256

PATIENT
  Age: 70 Year
  Sex: Female

DRUGS (10)
  1. CLONAZEPAM. [Concomitant]
     Active Substance: CLONAZEPAM
     Indication: SLEEP DISORDER
     Dosage: 1.5-2.5G-DOSE
  2. AUBAGIO [Suspect]
     Active Substance: TERIFLUNOMIDE
     Indication: MULTIPLE SCLEROSIS
     Route: 048
  3. FOSAMAX [Concomitant]
     Active Substance: ALENDRONATE SODIUM
     Indication: OSTEOPOROSIS
     Dates: start: 2002
  4. BACLOFEN. [Concomitant]
     Active Substance: BACLOFEN
     Indication: MUSCLE SPASTICITY
     Dates: start: 2009
  5. BUMEX [Concomitant]
     Active Substance: BUMETANIDE
     Indication: OEDEMA
     Dates: start: 201212
  6. AUBAGIO [Suspect]
     Active Substance: TERIFLUNOMIDE
     Indication: MULTIPLE SCLEROSIS
     Route: 048
     Dates: start: 20120112
  7. AUBAGIO [Suspect]
     Active Substance: TERIFLUNOMIDE
     Indication: MULTIPLE SCLEROSIS
     Route: 048
     Dates: end: 20150208
  8. AUBAGIO [Suspect]
     Active Substance: TERIFLUNOMIDE
     Indication: MULTIPLE SCLEROSIS
     Route: 048
     Dates: start: 20121212, end: 20140515
  9. CRESTOR [Concomitant]
     Active Substance: ROSUVASTATIN CALCIUM
     Indication: BLOOD CHOLESTEROL
     Dates: start: 2005
  10. BUMEX [Concomitant]
     Active Substance: BUMETANIDE
     Indication: CARDIAC FAILURE CONGESTIVE
     Dates: start: 201212

REACTIONS (10)
  - Arrhythmia [Fatal]
  - Cardio-respiratory arrest [Recovered/Resolved]
  - Respiratory disorder [Unknown]
  - Bone marrow failure [Unknown]
  - Pneumonia [Unknown]
  - Platelet count decreased [Recovered/Resolved]
  - Liver function test abnormal [Recovered/Resolved]
  - Cystitis [Unknown]
  - Anaemia [Recovered/Resolved]
  - Hyporeflexia [Recovering/Resolving]

NARRATIVE: CASE EVENT DATE: 20140516
